FAERS Safety Report 8766714 (Version 1)
Quarter: 2012Q4

REPORT INFORMATION
  Report Type: 
  Country: US (occurrence: US)
  Receive Date: 20120904
  Receipt Date: 20120904
  Transmission Date: 20130627
  Serious: No
  Sender: FDA-Public Use
  Company Number: US-B.I. PHARMACEUTICALS,INC./RIDGEFIELD-2012-BP-20934BP

PATIENT
  Age: 93 Year
  Sex: Female

DRUGS (8)
  1. MIRAPEX [Suspect]
     Indication: RESTLESS LEGS SYNDROME
     Dosage: 0.375 mg
     Route: 048
     Dates: start: 20120823
  2. COMBIVENT [Suspect]
     Indication: LUNG DISORDER
     Route: 055
  3. TRAMADOL [Concomitant]
     Indication: BACK PAIN
     Dosage: 100 mg
     Route: 048
  4. HYDROCODONE [Concomitant]
     Indication: BACK PAIN
     Route: 048
  5. OMEPRAZOLE [Concomitant]
     Indication: GASTRIC DISORDER
     Route: 048
  6. ALPRAZOLAM [Concomitant]
     Indication: ANXIETY
  7. MIRTAZAPINE [Concomitant]
  8. METOPROLOL [Concomitant]

REACTIONS (1)
  - Vaginal haemorrhage [Recovered/Resolved]
